FAERS Safety Report 14276439 (Version 3)
Quarter: 2018Q4

REPORT INFORMATION
  Report Type: Report from Study
  Country: BR (occurrence: BR)
  Receive Date: 20171212
  Receipt Date: 20181116
  Transmission Date: 20190204
  Serious: Yes (Other)
  Sender: FDA-Public Use
  Company Number: BR-ROCHE-2034070

PATIENT
  Sex: Female
  Weight: 47 kg

DRUGS (1)
  1. ACTEMRA [Suspect]
     Active Substance: TOCILIZUMAB
     Indication: RHEUMATOID ARTHRITIS
     Dosage: LATEST INFUSION WAS ON 23-OCT-2017
     Route: 042

REACTIONS (4)
  - Influenza [Recovered/Resolved]
  - Pruritus [Recovered/Resolved]
  - Pyrexia [Recovered/Resolved]
  - Erythema [Recovered/Resolved]
